FAERS Safety Report 4434703-X (Version None)
Quarter: 2004Q3

REPORT INFORMATION
  Report Type: 
  Country: None (occurrence: None)
  Receive Date: 20040728
  Receipt Date: 20040429
  Transmission Date: 20050211
  Serious: Yes (Disabling)
  Sender: FDA-Public Use
  Company Number: WAES 0404USA02595

PATIENT
  Age: 50 Year
  Sex: Female
  Weight: 91.6266 kg

DRUGS (11)
  1. EMEND [Suspect]
     Indication: CHEMOTHERAPY
     Dosage: 125 MG/1X/PO
     Route: 048
     Dates: start: 20040408, end: 20040408
  2. EMEND [Suspect]
     Indication: PROPHYLAXIS
     Dosage: 125 MG/1X/PO
     Route: 048
     Dates: start: 20040408, end: 20040408
  3. EMEND [Suspect]
     Indication: PROPHYLAXIS OF NAUSEA AND VOMITING
     Dosage: 80 MG DAILY/PO
     Route: 048
     Dates: start: 20040409, end: 20040410
  4. ADRIAMYCIN PFS [Concomitant]
  5. CELEXA [Concomitant]
  6. CYTOXAN [Concomitant]
  7. DECADRON [Concomitant]
  8. LIPITOR [Concomitant]
  9. PREVACID [Concomitant]
  10. WELLBUTRIN [Concomitant]
  11. [THERAPY UNSPECIFIED] [Concomitant]

REACTIONS (2)
  - CONFUSIONAL STATE [None]
  - DISORIENTATION [None]
